FAERS Safety Report 8247099-2 (Version None)
Quarter: 2012Q1

REPORT INFORMATION
  Report Type: 
  Country: None (occurrence: None)
  Receive Date: 20120316
  Receipt Date: 20091013
  Transmission Date: 20120608
  Serious: Yes (Other)
  Sender: FDA-Public Use
  Company Number: PHEH2008US11173

PATIENT
  Age: 69 Year
  Sex: Female

DRUGS (4)
  1. ATENOLOL [Concomitant]
  2. METOPROLOL TARTRATE [Concomitant]
  3. TEKTURNA [Suspect]
     Dosage: 150 MG, QD, ORAL
     Route: 048
     Dates: start: 20081216
  4. ENALAPRIL MALEATE [Concomitant]

REACTIONS (10)
  - OEDEMA [None]
  - PAIN IN EXTREMITY [None]
  - HYPERTENSION [None]
  - DIZZINESS [None]
  - ABDOMINAL PAIN UPPER [None]
  - ERYTHEMA [None]
  - TINNITUS [None]
  - FLUID RETENTION [None]
  - FEELING COLD [None]
  - MALAISE [None]
